FAERS Safety Report 18364845 (Version 1)
Quarter: 2020Q4

REPORT INFORMATION
  Report Type: Spontaneous
  Country: US (occurrence: US)
  Receive Date: 20201009
  Receipt Date: 20201009
  Transmission Date: 20210114
  Serious: Yes (Disabling)
  Sender: FDA-Public Use
  Company Number: None

PATIENT
  Age: 38 Year
  Sex: Female
  Weight: 85.5 kg

DRUGS (5)
  1. DYSPORT [Suspect]
     Active Substance: ABOBOTULINUMTOXINA
     Indication: MIGRAINE
     Dosage: ?          OTHER FREQUENCY:ONE TIME INJECTION;?
     Route: 030
     Dates: start: 20201003, end: 20201003
  2. MELATONIN/LTHEANINE CHEWS [Concomitant]
  3. FOOD BASED MULTIVITAMIN [Concomitant]
  4. PLANT BASED OMEGA-2/DHA SUPPLEMENT [Concomitant]
  5. DYSPORT [Suspect]
     Active Substance: ABOBOTULINUMTOXINA
     Indication: SKIN WRINKLING
     Dosage: ?          OTHER FREQUENCY:ONE TIME INJECTION;?
     Route: 030
     Dates: start: 20201003, end: 20201003

REACTIONS (5)
  - Palpitations [None]
  - Vertigo [None]
  - Syncope [None]
  - Panic attack [None]
  - Vision blurred [None]

NARRATIVE: CASE EVENT DATE: 20201003
